FAERS Safety Report 10866685 (Version 1)
Quarter: 2015Q1

REPORT INFORMATION
  Report Type: Spontaneous
  Country: US (occurrence: None)
  Receive Date: 20150220
  Receipt Date: 20150220
  Transmission Date: 20150721
  Serious: Yes (Other)
  Sender: FDA-Public Use
  Company Number: None

PATIENT
  Age: 62 Year
  Sex: Female
  Weight: 75.3 kg

DRUGS (6)
  1. WARFARIN SODIUM. [Suspect]
     Active Substance: WARFARIN SODIUM
     Indication: KNEE ARTHROPLASTY
     Dosage: 1 PILL
     Route: 048
  2. LEVOTHYROXINE [Concomitant]
     Active Substance: LEVOTHYROXINE
  3. CRESTOR [Concomitant]
     Active Substance: ROSUVASTATIN CALCIUM
  4. ESTRADIOL. [Concomitant]
     Active Substance: ESTRADIOL
  5. LOSARTAN [Concomitant]
     Active Substance: LOSARTAN
  6. LOW DOSE ASPIRIN [Concomitant]
     Active Substance: ASPIRIN

REACTIONS (3)
  - Urticaria [None]
  - Blood test abnormal [None]
  - Therapy change [None]

NARRATIVE: CASE EVENT DATE: 20150213
